FAERS Safety Report 18904521 (Version 1)
Quarter: 2021Q1

REPORT INFORMATION
  Report Type: Spontaneous
  Country: US (occurrence: US)
  Receive Date: 20210217
  Receipt Date: 20210217
  Transmission Date: 20210420
  Serious: No
  Sender: FDA-Public Use
  Company Number: NVSC2021US037607

PATIENT

DRUGS (1)
  1. VOLTAREN [Suspect]
     Active Substance: DICLOFENAC SODIUM
     Indication: MUSCULOSKELETAL DISCOMFORT
     Dosage: UNK
     Route: 065
     Dates: start: 202102

REACTIONS (3)
  - Off label use [Unknown]
  - Product prescribing issue [Unknown]
  - Product use issue [Unknown]

NARRATIVE: CASE EVENT DATE: 202102
